FAERS Safety Report 5758860-8 (Version None)
Quarter: 2008Q2

REPORT INFORMATION
  Report Type: 
  Country: None (occurrence: None)
  Receive Date: 20080603
  Receipt Date: 20080603
  Transmission Date: 20081010
  Serious: Yes (Hospitalization)
  Sender: FDA-Public Use
  Company Number: None

PATIENT
  Age: 69 Year
  Sex: Male

DRUGS (2)
  1. INDOMETHACIN [Suspect]
     Indication: OSTEOARTHRITIS
     Dosage: 25 MG BID PO
     Route: 048
     Dates: start: 20051130, end: 20080307
  2. ASPIRIN [Suspect]
     Indication: CARDIOVASCULAR EVENT PROPHYLAXIS
     Dosage: 81 MG EVERY DAY PO
     Route: 048
     Dates: start: 20060612, end: 20080310

REACTIONS (5)
  - ANAEMIA [None]
  - DIARRHOEA [None]
  - DUODENAL ULCER [None]
  - GASTRIC ULCER [None]
  - MELAENA [None]
